FAERS Safety Report 21461748 (Version 1)
Quarter: 2022Q4

REPORT INFORMATION
  Report Type: Report from Study
  Country: US (occurrence: US)
  Receive Date: 20221015
  Receipt Date: 20221015
  Transmission Date: 20230112
  Serious: No
  Sender: FDA-Public Use
  Company Number: US-ABBVIE-4146015

PATIENT
  Sex: Male

DRUGS (4)
  1. RINVOQ [Suspect]
     Active Substance: UPADACITINIB
     Indication: Rheumatoid arthritis
     Route: 048
  2. Moderna [Concomitant]
     Indication: COVID-19 immunisation
     Dosage: ONCE IN ONCE
     Route: 030
     Dates: start: 20210203, end: 20210203
  3. Moderna [Concomitant]
     Indication: COVID-19 immunisation
     Dosage: ONCE IN ONCE
     Route: 030
     Dates: start: 20210305, end: 20210305
  4. Moderna [Concomitant]
     Indication: COVID-19 immunisation
     Dosage: ONCE IN ONCE, COVID BOOSTER VACCINE
     Route: 030
     Dates: start: 20211003, end: 20211003

REACTIONS (3)
  - Drug ineffective [Not Recovered/Not Resolved]
  - Eye disorder [Not Recovered/Not Resolved]
  - Inflammatory marker decreased [Unknown]
